FAERS Safety Report 4588760-0 (Version None)
Quarter: 2005Q1

REPORT INFORMATION
  Report Type: 
  Country: None (occurrence: None)
  Receive Date: 20050222
  Receipt Date: 20050208
  Transmission Date: 20050727
  Serious: Yes (Hospitalization)
  Sender: FDA-Public Use
  Company Number: FR-JNJFOC-20050203458

PATIENT
  Sex: Male

DRUGS (2)
  1. TOPALGIC [Suspect]
     Indication: ACUTE SINUSITIS
     Route: 049
  2. GADOLINIUM DTPA [Concomitant]
     Indication: NUCLEAR MAGNETIC RESONANCE IMAGING
     Route: 042

REACTIONS (1)
  - AGRANULOCYTOSIS [None]
